FAERS Safety Report 17210394 (Version 1)
Quarter: 2019Q4

REPORT INFORMATION
  Report Type: Spontaneous
  Country: CN (occurrence: CN)
  Receive Date: 20191227
  Receipt Date: 20191227
  Transmission Date: 20200122
  Serious: Yes (Hospitalization)
  Sender: FDA-Public Use
  Company Number: CN-ASTRAZENECA-2019SF88370

PATIENT
  Age: 83 Year
  Sex: Female

DRUGS (1)
  1. IRESSA [Suspect]
     Active Substance: GEFITINIB
     Indication: SMALL CELL LUNG CANCER
     Dosage: 1 TABLET QD
     Route: 048

REACTIONS (5)
  - Nasopharyngitis [Recovering/Resolving]
  - Pyrexia [Recovered/Resolved]
  - Immune system disorder [Unknown]
  - Nausea [Unknown]
  - Vomiting [Unknown]
